FAERS Safety Report 26013509 (Version 2)
Quarter: 2025Q4

REPORT INFORMATION
  Report Type: Spontaneous
  Country: EU (occurrence: EU)
  Receive Date: 20251107
  Receipt Date: 20251113
  Transmission Date: 20260118
  Serious: Yes (Death, Hospitalization)
  Sender: MYLAN
  Company Number: EU-ROCHE-10000370581

PATIENT
  Age: 72 Year
  Sex: Male

DRUGS (76)
  1. OXALIPLATIN [Suspect]
     Active Substance: OXALIPLATIN
     Indication: Colorectal cancer metastatic
     Dosage: 286 MILLIGRAM, CYCLE (EVERY 1CYCLE(S))
     Dates: start: 20250331, end: 20250804
  2. OXALIPLATIN [Suspect]
     Active Substance: OXALIPLATIN
     Dosage: 286 MILLIGRAM, CYCLE (EVERY 1CYCLE(S))
     Dates: start: 20250331, end: 20250804
  3. OXALIPLATIN [Suspect]
     Active Substance: OXALIPLATIN
     Dosage: 286 MILLIGRAM, CYCLE (EVERY 1CYCLE(S))
     Route: 042
     Dates: start: 20250331, end: 20250804
  4. OXALIPLATIN [Suspect]
     Active Substance: OXALIPLATIN
     Dosage: 286 MILLIGRAM, CYCLE (EVERY 1CYCLE(S))
     Route: 042
     Dates: start: 20250331, end: 20250804
  5. OXALIPLATIN [Suspect]
     Active Substance: OXALIPLATIN
     Dosage: 280 MILLIGRAM
  6. OXALIPLATIN [Suspect]
     Active Substance: OXALIPLATIN
     Dosage: 280 MILLIGRAM
  7. OXALIPLATIN [Suspect]
     Active Substance: OXALIPLATIN
     Dosage: 280 MILLIGRAM
     Route: 065
  8. OXALIPLATIN [Suspect]
     Active Substance: OXALIPLATIN
     Dosage: 280 MILLIGRAM
     Route: 065
  9. CAPECITABINE [Suspect]
     Active Substance: CAPECITABINE
     Indication: Colorectal cancer metastatic
     Dosage: 4300 MILLIGRAM, CYCLE (EVERY 1 CYCLE)
     Dates: start: 20250401, end: 20250816
  10. CAPECITABINE [Suspect]
     Active Substance: CAPECITABINE
     Dosage: 4300 MILLIGRAM, CYCLE (EVERY 1 CYCLE)
     Dates: start: 20250401, end: 20250816
  11. CAPECITABINE [Suspect]
     Active Substance: CAPECITABINE
     Dosage: 4300 MILLIGRAM, CYCLE (EVERY 1 CYCLE)
     Route: 065
     Dates: start: 20250401, end: 20250816
  12. CAPECITABINE [Suspect]
     Active Substance: CAPECITABINE
     Dosage: 4300 MILLIGRAM, CYCLE (EVERY 1 CYCLE)
     Route: 065
     Dates: start: 20250401, end: 20250816
  13. CAPECITABINE [Suspect]
     Active Substance: CAPECITABINE
     Dosage: 4300 MILLIGRAM
  14. CAPECITABINE [Suspect]
     Active Substance: CAPECITABINE
     Dosage: 4300 MILLIGRAM
  15. CAPECITABINE [Suspect]
     Active Substance: CAPECITABINE
     Dosage: 4300 MILLIGRAM
     Route: 065
  16. CAPECITABINE [Suspect]
     Active Substance: CAPECITABINE
     Dosage: 4300 MILLIGRAM
     Route: 065
  17. BEVACIZUMAB [Suspect]
     Active Substance: BEVACIZUMAB
     Indication: Colorectal cancer metastatic
     Dosage: 725 MILLIGRAM, CYCLE (EVERY 1 CYCLE(S))
     Dates: start: 20250530, end: 20250804
  18. BEVACIZUMAB [Suspect]
     Active Substance: BEVACIZUMAB
     Dosage: 725 MILLIGRAM, CYCLE (EVERY 1 CYCLE(S))
     Dates: start: 20250530, end: 20250804
  19. BEVACIZUMAB [Suspect]
     Active Substance: BEVACIZUMAB
     Dosage: 725 MILLIGRAM, CYCLE (EVERY 1 CYCLE(S))
     Route: 042
     Dates: start: 20250530, end: 20250804
  20. BEVACIZUMAB [Suspect]
     Active Substance: BEVACIZUMAB
     Dosage: 725 MILLIGRAM, CYCLE (EVERY 1 CYCLE(S))
     Route: 042
     Dates: start: 20250530, end: 20250804
  21. BEVACIZUMAB [Suspect]
     Active Substance: BEVACIZUMAB
     Dosage: 720 MILLIGRAM
  22. BEVACIZUMAB [Suspect]
     Active Substance: BEVACIZUMAB
     Dosage: 720 MILLIGRAM
  23. BEVACIZUMAB [Suspect]
     Active Substance: BEVACIZUMAB
     Dosage: 720 MILLIGRAM
     Route: 065
  24. BEVACIZUMAB [Suspect]
     Active Substance: BEVACIZUMAB
     Dosage: 720 MILLIGRAM
     Route: 065
  25. ATEZOLIZUMAB [Suspect]
     Active Substance: ATEZOLIZUMAB
     Indication: Colorectal cancer metastatic
     Dosage: 1200 MILLIGRAM, CYCLE (EVERY 1CYCLE(S))
     Dates: start: 20250331, end: 20250804
  26. ATEZOLIZUMAB [Suspect]
     Active Substance: ATEZOLIZUMAB
     Dosage: 1200 MILLIGRAM, CYCLE (EVERY 1CYCLE(S))
     Dates: start: 20250331, end: 20250804
  27. ATEZOLIZUMAB [Suspect]
     Active Substance: ATEZOLIZUMAB
     Dosage: 1200 MILLIGRAM, CYCLE (EVERY 1CYCLE(S))
     Route: 042
     Dates: start: 20250331, end: 20250804
  28. ATEZOLIZUMAB [Suspect]
     Active Substance: ATEZOLIZUMAB
     Dosage: 1200 MILLIGRAM, CYCLE (EVERY 1CYCLE(S))
     Route: 042
     Dates: start: 20250331, end: 20250804
  29. ATEZOLIZUMAB [Suspect]
     Active Substance: ATEZOLIZUMAB
     Dosage: 1200 MILLIGRAM
  30. ATEZOLIZUMAB [Suspect]
     Active Substance: ATEZOLIZUMAB
     Dosage: 1200 MILLIGRAM
  31. ATEZOLIZUMAB [Suspect]
     Active Substance: ATEZOLIZUMAB
     Dosage: 1200 MILLIGRAM
     Route: 065
  32. ATEZOLIZUMAB [Suspect]
     Active Substance: ATEZOLIZUMAB
     Dosage: 1200 MILLIGRAM
     Route: 065
  33. DEVICE\YTTRIUM Y-90 [Suspect]
     Active Substance: DEVICE\YTTRIUM Y-90
     Indication: Colorectal cancer metastatic
     Dosage: UNK, INTRAVENOUS DRIP
     Dates: start: 20250515, end: 20250515
  34. DEVICE\YTTRIUM Y-90 [Suspect]
     Active Substance: DEVICE\YTTRIUM Y-90
     Dosage: UNK, INTRAVENOUS DRIP
     Route: 042
     Dates: start: 20250515, end: 20250515
  35. DEVICE\YTTRIUM Y-90 [Suspect]
     Active Substance: DEVICE\YTTRIUM Y-90
     Dosage: UNK, INTRAVENOUS DRIP
     Route: 042
     Dates: start: 20250515, end: 20250515
  36. DEVICE\YTTRIUM Y-90 [Suspect]
     Active Substance: DEVICE\YTTRIUM Y-90
     Dosage: UNK, INTRAVENOUS DRIP
     Dates: start: 20250515, end: 20250515
  37. CANDESARTAN [Concomitant]
     Active Substance: CANDESARTAN
     Indication: Hypertension
     Dosage: 16 MILLIGRAM, QD (16 MG/D)
     Dates: start: 20250117
  38. CANDESARTAN [Concomitant]
     Active Substance: CANDESARTAN
     Dosage: 16 MILLIGRAM, QD (16 MG/D)
     Route: 065
     Dates: start: 20250117
  39. CANDESARTAN [Concomitant]
     Active Substance: CANDESARTAN
     Dosage: 16 MILLIGRAM, QD (16 MG/D)
     Route: 065
     Dates: start: 20250117
  40. CANDESARTAN [Concomitant]
     Active Substance: CANDESARTAN
     Dosage: 16 MILLIGRAM, QD (16 MG/D)
     Dates: start: 20250117
  41. AMLODIPINE [Concomitant]
     Active Substance: AMLODIPINE BESYLATE
     Indication: Hypertension
     Dosage: 5 MILLIGRAM, QD (5 MG/D)
     Dates: start: 20250117
  42. AMLODIPINE [Concomitant]
     Active Substance: AMLODIPINE BESYLATE
     Dosage: 5 MILLIGRAM, QD (5 MG/D)
     Route: 065
     Dates: start: 20250117
  43. AMLODIPINE [Concomitant]
     Active Substance: AMLODIPINE BESYLATE
     Dosage: 5 MILLIGRAM, QD (5 MG/D)
     Route: 065
     Dates: start: 20250117
  44. AMLODIPINE [Concomitant]
     Active Substance: AMLODIPINE BESYLATE
     Dosage: 5 MILLIGRAM, QD (5 MG/D)
     Dates: start: 20250117
  45. METFORMIN HYDROCHLORIDE\VILDAGLIPTIN [Concomitant]
     Active Substance: METFORMIN HYDROCHLORIDE\VILDAGLIPTIN
     Indication: Type 2 diabetes mellitus
     Dosage: UNK
  46. METFORMIN HYDROCHLORIDE\VILDAGLIPTIN [Concomitant]
     Active Substance: METFORMIN HYDROCHLORIDE\VILDAGLIPTIN
     Dosage: UNK
     Route: 065
  47. METFORMIN HYDROCHLORIDE\VILDAGLIPTIN [Concomitant]
     Active Substance: METFORMIN HYDROCHLORIDE\VILDAGLIPTIN
     Dosage: UNK
     Route: 065
  48. METFORMIN HYDROCHLORIDE\VILDAGLIPTIN [Concomitant]
     Active Substance: METFORMIN HYDROCHLORIDE\VILDAGLIPTIN
     Dosage: UNK
  49. DAFALGAN [Concomitant]
     Active Substance: ACETAMINOPHEN
     Indication: Pain
     Dosage: 500 MILLIGRAM, PRN (AS NECESSARY)
  50. DAFALGAN [Concomitant]
     Active Substance: ACETAMINOPHEN
     Dosage: 500 MILLIGRAM, PRN (AS NECESSARY)
     Route: 065
  51. DAFALGAN [Concomitant]
     Active Substance: ACETAMINOPHEN
     Dosage: 500 MILLIGRAM, PRN (AS NECESSARY)
     Route: 065
  52. DAFALGAN [Concomitant]
     Active Substance: ACETAMINOPHEN
     Dosage: 500 MILLIGRAM, PRN (AS NECESSARY)
  53. TAHOR [Concomitant]
     Active Substance: ATORVASTATIN CALCIUM
     Indication: Hypercholesterolaemia
     Dosage: 20 MILLIGRAM, QD (20 MG/D)
     Dates: start: 20250117
  54. TAHOR [Concomitant]
     Active Substance: ATORVASTATIN CALCIUM
     Dosage: 20 MILLIGRAM, QD (20 MG/D)
     Route: 065
     Dates: start: 20250117
  55. TAHOR [Concomitant]
     Active Substance: ATORVASTATIN CALCIUM
     Dosage: 20 MILLIGRAM, QD (20 MG/D)
     Route: 065
     Dates: start: 20250117
  56. TAHOR [Concomitant]
     Active Substance: ATORVASTATIN CALCIUM
     Dosage: 20 MILLIGRAM, QD (20 MG/D)
     Dates: start: 20250117
  57. APREPITANT [Concomitant]
     Active Substance: APREPITANT
     Indication: Nausea
     Dosage: 125 MILLIGRAM, CYCLE (D2D3 80 MG AT EACH CYCLE)
     Dates: start: 20250331
  58. APREPITANT [Concomitant]
     Active Substance: APREPITANT
     Dosage: 125 MILLIGRAM, CYCLE (D2D3 80 MG AT EACH CYCLE)
     Route: 065
     Dates: start: 20250331
  59. APREPITANT [Concomitant]
     Active Substance: APREPITANT
     Dosage: 125 MILLIGRAM, CYCLE (D2D3 80 MG AT EACH CYCLE)
     Route: 065
     Dates: start: 20250331
  60. APREPITANT [Concomitant]
     Active Substance: APREPITANT
     Dosage: 125 MILLIGRAM, CYCLE (D2D3 80 MG AT EACH CYCLE)
     Dates: start: 20250331
  61. ONDANSETRON [Concomitant]
     Active Substance: ONDANSETRON
     Indication: Nausea
     Dosage: 16 MILLIGRAM, QD (16 MG/D)
     Dates: start: 20250401
  62. ONDANSETRON [Concomitant]
     Active Substance: ONDANSETRON
     Dosage: 16 MILLIGRAM, QD (16 MG/D)
     Route: 065
     Dates: start: 20250401
  63. ONDANSETRON [Concomitant]
     Active Substance: ONDANSETRON
     Dosage: 16 MILLIGRAM, QD (16 MG/D)
     Route: 065
     Dates: start: 20250401
  64. ONDANSETRON [Concomitant]
     Active Substance: ONDANSETRON
     Dosage: 16 MILLIGRAM, QD (16 MG/D)
     Dates: start: 20250401
  65. PRIMPERAN [Concomitant]
     Active Substance: METOCLOPRAMIDE HYDROCHLORIDE
     Indication: Nausea
     Dosage: 10 MILLIGRAM, Q8H
     Dates: start: 20250716
  66. PRIMPERAN [Concomitant]
     Active Substance: METOCLOPRAMIDE HYDROCHLORIDE
     Dosage: 10 MILLIGRAM, Q8H
     Route: 065
     Dates: start: 20250716
  67. PRIMPERAN [Concomitant]
     Active Substance: METOCLOPRAMIDE HYDROCHLORIDE
     Dosage: 10 MILLIGRAM, Q8H
     Route: 065
     Dates: start: 20250716
  68. PRIMPERAN [Concomitant]
     Active Substance: METOCLOPRAMIDE HYDROCHLORIDE
     Dosage: 10 MILLIGRAM, Q8H
     Dates: start: 20250716
  69. IMODIUM [Concomitant]
     Active Substance: LOPERAMIDE HYDROCHLORIDE
     Indication: Diarrhoea
     Dosage: 2 MILLIGRAM, PRN
  70. IMODIUM [Concomitant]
     Active Substance: LOPERAMIDE HYDROCHLORIDE
     Dosage: 2 MILLIGRAM, PRN
     Route: 065
  71. IMODIUM [Concomitant]
     Active Substance: LOPERAMIDE HYDROCHLORIDE
     Dosage: 2 MILLIGRAM, PRN
     Route: 065
  72. IMODIUM [Concomitant]
     Active Substance: LOPERAMIDE HYDROCHLORIDE
     Dosage: 2 MILLIGRAM, PRN
  73. LANSOPRAZOLE [Concomitant]
     Active Substance: LANSOPRAZOLE
     Indication: Gastrooesophageal reflux disease
     Dosage: 30 MILLIGRAM, QD (30 MG/D)
     Dates: start: 20250813
  74. LANSOPRAZOLE [Concomitant]
     Active Substance: LANSOPRAZOLE
     Dosage: 30 MILLIGRAM, QD (30 MG/D)
     Route: 065
     Dates: start: 20250813
  75. LANSOPRAZOLE [Concomitant]
     Active Substance: LANSOPRAZOLE
     Dosage: 30 MILLIGRAM, QD (30 MG/D)
     Route: 065
     Dates: start: 20250813
  76. LANSOPRAZOLE [Concomitant]
     Active Substance: LANSOPRAZOLE
     Dosage: 30 MILLIGRAM, QD (30 MG/D)
     Dates: start: 20250813

REACTIONS (3)
  - General physical health deterioration [Fatal]
  - Pure white cell aplasia [Not Recovered/Not Resolved]
  - Fall [Unknown]

NARRATIVE: CASE EVENT DATE: 20250817
